FAERS Safety Report 5068099-X (Version None)
Quarter: 2006Q3

REPORT INFORMATION
  Report Type: 
  Country: None (occurrence: None)
  Receive Date: 20060731
  Receipt Date: 20060720
  Transmission Date: 20061208
  Serious: Yes (Hospitalization)
  Sender: FDA-Public Use
  Company Number: US-2006-016958

PATIENT
  Age: 51 Year
  Sex: Female
  Weight: 77.1 kg

DRUGS (3)
  1. YAZ [Suspect]
     Indication: MENOMETRORRHAGIA
     Dosage: 1 TAB(S), 1X/DAY, ORAL
     Route: 048
     Dates: start: 20060608, end: 20060616
  2. LEVOXYL [Concomitant]
  3. AMBIEN [Concomitant]

REACTIONS (16)
  - ARTHROPOD BITE [None]
  - BLOOD IRON DECREASED [None]
  - CHEST PAIN [None]
  - DISEASE RECURRENCE [None]
  - DYSKINESIA [None]
  - DYSPNOEA [None]
  - DYSTONIA [None]
  - HERPES ZOSTER [None]
  - MUSCLE SPASMS [None]
  - MUSCLE TWITCHING [None]
  - MUSCULAR WEAKNESS [None]
  - PARAESTHESIA [None]
  - RASH [None]
  - SENSORY DISTURBANCE [None]
  - SERUM FERRITIN DECREASED [None]
  - VAGINAL HAEMORRHAGE [None]
